FAERS Safety Report 6075488-3 (Version None)
Quarter: 2009Q1

REPORT INFORMATION
  Report Type: 
  Country: None (occurrence: None)
  Receive Date: 20090212
  Receipt Date: 20090202
  Transmission Date: 20090719
  Serious: Yes (Other)
  Sender: FDA-Public Use
  Company Number: B0558351A

PATIENT
  Age: 49 Year
  Sex: Female
  Weight: 85 kg

DRUGS (3)
  1. IMIGRAN [Suspect]
     Indication: MIGRAINE
     Route: 048
     Dates: start: 19980101
  2. TRAMADOL HCL [Suspect]
     Indication: BACK PAIN
     Dosage: 50MG PER DAY
     Route: 048
  3. CITALOPRAM HYDROBROMIDE [Concomitant]
     Dosage: 20MG TWICE PER DAY
     Route: 048
     Dates: start: 20071221

REACTIONS (4)
  - DRUG INTERACTION [None]
  - HEADACHE [None]
  - NECK PAIN [None]
  - VOMITING [None]
